FAERS Safety Report 5103098-0 (Version None)
Quarter: 2006Q3

REPORT INFORMATION
  Report Type: 
  Country: None (occurrence: None)
  Receive Date: 20060907
  Receipt Date: 20060821
  Transmission Date: 20061208
  Serious: Yes (Hospitalization)
  Sender: FDA-Public Use
  Company Number: 6025146

PATIENT
  Age: 55 Year
  Sex: Female

DRUGS (9)
  1. CARDENSIEL (BISOPROLOL FUMARATE) [Suspect]
     Indication: MITRAL VALVE INCOMPETENCE
     Dosage: 1.25 MG (1.25 MG, 1 D) - LONG TERM
     Route: 048
     Dates: end: 20060705
  2. OMEPRAZOLE [Suspect]
     Indication: GASTROINTESTINAL HAEMORRHAGE
     Dates: start: 20060717, end: 20060720
  3. LOVENOX [Suspect]
     Indication: VENOUS THROMBOSIS
     Dosage: 2 MU (2 MU, 1D) SUBCUTANEOUS
     Route: 058
     Dates: start: 20060717
  4. DEROXAT (PROXETINE HYDROCHLORIDE) [Suspect]
     Indication: DEPRESSION
     Dosage: 20 MG (20 MG, 1 D) ORAL
     Route: 048
     Dates: start: 20060717
  5. DIGOXIN TAB [Suspect]
     Indication: MITRAL VALVE INCOMPETENCE
     Dosage: 0.25 MG (0.25 MG, 1D) ORAL - LONG TERM
     Route: 048
     Dates: end: 20060705
  6. EFFEXOR [Suspect]
     Indication: DEPRESSION
     Dosage: (1D) ORAL - LONG TERM
     Route: 048
     Dates: end: 20060705
  7. XANAX [Concomitant]
  8. DAFALGAN CODEINE (CODEINE PHOSPHATE, PARACETAMOL) [Concomitant]
  9. IMOVANE (ZOPICLONE) [Concomitant]

REACTIONS (2)
  - ANAEMIA [None]
  - THROMBOCYTOPENIA [None]
